FAERS Safety Report 13466193 (Version 1)
Quarter: 2017Q2

REPORT INFORMATION
  Report Type: Spontaneous
  Country: JP (occurrence: JP)
  Receive Date: 20170421
  Receipt Date: 20170421
  Transmission Date: 20170830
  Serious: Yes (Hospitalization, Disabling)
  Sender: FDA-Public Use
  Company Number: JP-BION-006210

PATIENT
  Age: 75 Year
  Sex: Female

DRUGS (3)
  1. VALPROIC ACID. [Suspect]
     Active Substance: VALPROIC ACID
     Indication: BIPOLAR DISORDER
     Dosage: DOSE REDUCED TO 800 MG/DAY;?REDUCED TO 400 MG/DAY ON DAY OF ADMISSION; THEN?DISCONTINUED ON DAY 7.
  2. PEROSPIRONE/PEROSPIRONE HYDROCHLORIDE [Concomitant]
  3. DONEPEZIL. [Concomitant]
     Active Substance: DONEPEZIL
     Indication: COGNITIVE DISORDER

REACTIONS (1)
  - Parkinsonism [Recovering/Resolving]
